FAERS Safety Report 7091615-3 (Version None)
Quarter: 2010Q4

REPORT INFORMATION
  Report Type: 
  Country: None (occurrence: None)
  Receive Date: 20101109
  Receipt Date: 20101102
  Transmission Date: 20110411
  Serious: Yes (Death, Life-Threatening, Other)
  Sender: FDA-Public Use
  Company Number: NL-GENZYME-CLOF-1001298

PATIENT
  Sex: Male
  Weight: 72 kg

DRUGS (7)
  1. EVOLTRA [Suspect]
     Indication: ACUTE LEUKAEMIA
     Dosage: 19 MG, QDX5
     Route: 042
     Dates: start: 20101005, end: 20101009
  2. CYTARABINE [Suspect]
     Indication: ACUTE LEUKAEMIA
     Dosage: 1900 MG, QD
     Route: 042
     Dates: start: 20101005, end: 20101010
  3. AMSACRINE [Suspect]
     Indication: ACUTE LEUKAEMIA
     Dosage: 230 MG, QDX3
     Route: 042
     Dates: start: 20101008, end: 20101010
  4. HEPARIN [Suspect]
     Indication: DEEP VEIN THROMBOSIS
     Dosage: 20000 IU, UNK
     Route: 042
     Dates: start: 20101011, end: 20101101
  5. IMIPENEM [Concomitant]
     Indication: INFECTION
     Dosage: 500 MG, UNK
     Route: 042
     Dates: start: 20101022, end: 20101101
  6. VANCOMYCIN [Concomitant]
     Indication: INFECTION
     Dosage: 1000 MG, UNK
     Route: 042
     Dates: start: 20101023, end: 20101101
  7. VORICONAZOLE [Concomitant]
     Indication: INFECTION
     Dosage: 200 MG, UNK
     Route: 042
     Dates: start: 20101029, end: 20101101

REACTIONS (2)
  - BRONCHOPULMONARY ASPERGILLOSIS [None]
  - CEREBRAL HAEMORRHAGE [None]
